FAERS Safety Report 17443563 (Version 1)
Quarter: 2020Q1

REPORT INFORMATION
  Report Type: Spontaneous
  Country: US (occurrence: US)
  Receive Date: 20200220
  Receipt Date: 20200220
  Transmission Date: 20200409
  Serious: Yes (Hospitalization)
  Sender: FDA-Public Use
  Company Number: None

PATIENT
  Age: 62 Year
  Sex: Female
  Weight: 76.5 kg

DRUGS (5)
  1. RALOXIFENE (SUB FOR CALCITONIN) [Concomitant]
  2. CALCIUM [Concomitant]
     Active Substance: CALCIUM
  3. CALCITONIN, SYNTHETIC [Suspect]
     Active Substance: CALCITONIN
     Indication: OSTEOPOROSIS
     Route: 055
     Dates: start: 20191112, end: 20191118
  4. VITAMIN B, D, K2 [Concomitant]
  5. MAGNESIUM [Concomitant]
     Active Substance: MAGNESIUM

REACTIONS (2)
  - Meningitis viral [None]
  - Product substitution issue [None]

NARRATIVE: CASE EVENT DATE: 20191118
